FAERS Safety Report 14526408 (Version 4)
Quarter: 2018Q4

REPORT INFORMATION
  Report Type: Spontaneous
  Country: US (occurrence: US)
  Receive Date: 20180213
  Receipt Date: 20181029
  Transmission Date: 20190204
  Serious: Yes (Death, Hospitalization, Other)
  Sender: FDA-Public Use
  Company Number: US-DSJP-DSU-2017-146784

PATIENT

DRUGS (2)
  1. BENICAR [Suspect]
     Active Substance: OLMESARTAN MEDOXOMIL
     Dosage: BENICAR 20 MG HALF , QD
  2. BENICAR [Suspect]
     Active Substance: OLMESARTAN MEDOXOMIL
     Indication: PRODUCT USED FOR UNKNOWN INDICATION
     Dosage: 20 MG, QD
     Route: 048
     Dates: start: 2002, end: 20060630

REACTIONS (13)
  - Occult blood positive [Recovered/Resolved]
  - Large intestine polyp [Unknown]
  - Sprue-like enteropathy [Recovering/Resolving]
  - Product administration error [Unknown]
  - Diverticulum [Unknown]
  - Cholelithiasis [Unknown]
  - Gastritis erosive [Unknown]
  - Haemorrhoids [Unknown]
  - Gastrooesophageal reflux disease [Unknown]
  - Pancreatitis [Unknown]
  - Acute kidney injury [Unknown]
  - Cerebral haemorrhage [Fatal]
  - Inflammatory bowel disease [Unknown]

NARRATIVE: CASE EVENT DATE: 20060201
